FAERS Safety Report 14568581 (Version 1)
Quarter: 2018Q1

REPORT INFORMATION
  Report Type: Spontaneous
  Country: US (occurrence: US)
  Receive Date: 20180219
  Receipt Date: 20180219
  Transmission Date: 20180509
  Serious: Yes (Hospitalization)
  Sender: FDA-Public Use
  Company Number: None

PATIENT
  Sex: Female

DRUGS (9)
  1. VORICONAZOLE. [Concomitant]
     Active Substance: VORICONAZOLE
  2. MEPRON [Concomitant]
     Active Substance: ATOVAQUONE
  3. GABAPENTIN. [Concomitant]
     Active Substance: GABAPENTIN
  4. ATOVAQUONE. [Concomitant]
     Active Substance: ATOVAQUONE
  5. SYNTHROID [Concomitant]
     Active Substance: LEVOTHYROXINE SODIUM
  6. ACYCLOVIR. [Concomitant]
     Active Substance: ACYCLOVIR
  7. SMT/TMP [Concomitant]
  8. NOXAFIL [Concomitant]
     Active Substance: POSACONAZOLE
  9. BOSULIF [Suspect]
     Active Substance: BOSUTINIB MONOHYDRATE
     Indication: LEUKOCYTOSIS
     Route: 048
     Dates: start: 20171013

REACTIONS (1)
  - Stem cell transplant [None]
